FAERS Safety Report 4891920-2 (Version None)
Quarter: 2006Q1

REPORT INFORMATION
  Report Type: 
  Country: None (occurrence: None)
  Receive Date: 20060123
  Receipt Date: 20060109
  Transmission Date: 20060701
  Serious: Yes (Other)
  Sender: FDA-Public Use
  Company Number: 219766

PATIENT
  Age: 51 Year
  Sex: Male

DRUGS (3)
  1. MABTHERA (RITUXIMAB) CONC FOR SOLUTION FOR INFUSION [Suspect]
     Indication: NON-HODGKIN'S LYMPHOMA
     Dates: start: 20030101, end: 20050101
  2. NOVANTRONE [Concomitant]
  3. FLUDARABINE PHOSPHATE [Concomitant]

REACTIONS (3)
  - METASTASES TO CENTRAL NERVOUS SYSTEM [None]
  - PAPILLOEDEMA [None]
  - THERAPY NON-RESPONDER [None]
